FAERS Safety Report 24184018 (Version 4)
Quarter: 2025Q1

REPORT INFORMATION
  Report Type: Report from Study
  Country: US (occurrence: US)
  Receive Date: 20240807
  Receipt Date: 20250307
  Transmission Date: 20250409
  Serious: No
  Sender: SANOFI AVENTIS
  Company Number: US-SA-SAC20240801000838

PATIENT
  Age: 10 Year
  Sex: Male

DRUGS (4)
  1. EFTRENONACOG ALFA [Suspect]
     Active Substance: EFTRENONACOG ALFA
     Indication: Factor IX deficiency
     Route: 042
  2. EFTRENONACOG ALFA [Suspect]
     Active Substance: EFTRENONACOG ALFA
     Indication: Factor IX deficiency
     Route: 042
  3. EFTRENONACOG ALFA [Suspect]
     Active Substance: EFTRENONACOG ALFA
     Dosage: 4000 IU, BIW
     Route: 042
  4. EFTRENONACOG ALFA [Suspect]
     Active Substance: EFTRENONACOG ALFA
     Dosage: 4000 IU, BIW
     Route: 042

REACTIONS (10)
  - Haemorrhage [Unknown]
  - Fall [Unknown]
  - Wrist fracture [Unknown]
  - Chest pain [Unknown]
  - Muscle strain [Unknown]
  - Poor venous access [Unknown]
  - Haematuria [Unknown]
  - Abdominal pain [Recovering/Resolving]
  - Nausea [Recovering/Resolving]
  - Headache [Not Recovered/Not Resolved]

NARRATIVE: CASE EVENT DATE: 20240723
